FAERS Safety Report 5104721-7 (Version None)
Quarter: 2006Q3

REPORT INFORMATION
  Report Type: 
  Country: None (occurrence: None)
  Receive Date: 20060731
  Receipt Date: 20050607
  Transmission Date: 20061208
  Serious: Yes (Other)
  Sender: FDA-Public Use
  Company Number: US-JNJFOC-20050502661

PATIENT
  Age: 35 Year
  Sex: Male

DRUGS (2)
  1. RISPERDAL [Suspect]
     Indication: BIPOLAR DISORDER
     Dosage: 2 MG, 2 IN 1 DAY
     Dates: start: 20050401
  2. DEPAKOTE [Concomitant]

REACTIONS (1)
  - PRIAPISM [None]
